FAERS Safety Report 21418567 (Version 1)
Quarter: 2022Q4

REPORT INFORMATION
  Report Type: Report from Study
  Country: CN (occurrence: CN)
  Receive Date: 20221006
  Receipt Date: 20221006
  Transmission Date: 20230113
  Serious: Yes (Death)
  Sender: FDA-Public Use
  Company Number: CN-BIOGEN-2022BI01159625

PATIENT
  Sex: Female

DRUGS (6)
  1. SPINRAZA [Suspect]
     Active Substance: NUSINERSEN
     Indication: Spinal muscular atrophy
     Dosage: 1ST DOSE
     Route: 050
     Dates: start: 20210429
  2. SPINRAZA [Suspect]
     Active Substance: NUSINERSEN
     Dosage: 2ND DOSE
     Route: 050
  3. SPINRAZA [Suspect]
     Active Substance: NUSINERSEN
     Dosage: 3RD DOSE
     Route: 050
     Dates: start: 20210527
  4. SPINRAZA [Suspect]
     Active Substance: NUSINERSEN
     Dosage: 4TH DOSE
     Route: 050
     Dates: start: 20210701
  5. SPINRAZA [Suspect]
     Active Substance: NUSINERSEN
     Dosage: 5TH DOSE
     Route: 050
     Dates: start: 20211103
  6. SPINRAZA [Suspect]
     Active Substance: NUSINERSEN
     Dosage: 6TH DOSE
     Route: 050
     Dates: start: 20220226

REACTIONS (1)
  - Death [Fatal]
